FAERS Safety Report 20836168 (Version 3)
Quarter: 2023Q2

REPORT INFORMATION
  Report Type: Spontaneous
  Country: US (occurrence: US)
  Receive Date: 20220516
  Receipt Date: 20230424
  Transmission Date: 20230721
  Serious: Yes (Other)
  Sender: FDA-Public Use
  Company Number: US-BRISTOL-MYERS SQUIBB COMPANY-2022-036608

PATIENT
  Age: 43 Year
  Sex: Male

DRUGS (2)
  1. ZEPOSIA [Suspect]
     Active Substance: OZANIMOD HYDROCHLORIDE
     Indication: Multiple sclerosis
     Route: 048
     Dates: start: 20220204, end: 20220218
  2. ZEPOSIA [Suspect]
     Active Substance: OZANIMOD HYDROCHLORIDE
     Route: 048
     Dates: start: 20220127, end: 20220323

REACTIONS (9)
  - Heart rate decreased [Unknown]
  - Headache [Unknown]
  - Bradycardia [Recovered/Resolved]
  - Abdominal pain [Unknown]
  - Cardiac flutter [Unknown]
  - Dizziness [Unknown]
  - Mental fatigue [Unknown]
  - Fatigue [Unknown]
  - Flushing [Unknown]

NARRATIVE: CASE EVENT DATE: 20220204
